FAERS Safety Report 7471215-3 (Version None)
Quarter: 2011Q2

REPORT INFORMATION
  Report Type: 
  Country: None (occurrence: None)
  Receive Date: 20110510
  Receipt Date: 20110509
  Transmission Date: 20111010
  Serious: Yes (Other)
  Sender: FDA-Public Use
  Company Number: JP-PFIZER INC-2011091006

PATIENT
  Age: 53 Year
  Sex: Male

DRUGS (1)
  1. ZOLOFT [Suspect]
     Dosage: 50 MG, DAILY
     Route: 048
     Dates: start: 20110411

REACTIONS (2)
  - VISION BLURRED [None]
  - DIPLOPIA [None]
